FAERS Safety Report 9592807 (Version 1)
Quarter: 2013Q4

REPORT INFORMATION
  Report Type: Spontaneous
  Country: JP (occurrence: JP)
  Receive Date: 20131004
  Receipt Date: 20131004
  Transmission Date: 20140711
  Serious: Yes (Hospitalization, Other)
  Sender: FDA-Public Use
  Company Number: JP-ROXANE LABORATORIES, INC.-2013-RO-01607RO

PATIENT
  Age: 54 Year
  Sex: Male

DRUGS (4)
  1. LITHIUM CARBONATE [Suspect]
     Indication: BIPOLAR I DISORDER
     Dosage: 400 MG
  2. SERTRALINE [Suspect]
     Indication: DEPRESSIVE SYMPTOM
     Dosage: 25 MG
  3. LAMOTRIGINE [Suspect]
     Indication: DEPRESSIVE SYMPTOM
     Dosage: 200 MG
  4. ARIPIPRAZOLE [Suspect]
     Indication: BIPOLAR I DISORDER
     Dosage: 6 MG

REACTIONS (3)
  - Neuroleptic malignant syndrome [Recovered/Resolved]
  - Depressive symptom [Unknown]
  - Tremor [Unknown]
